FAERS Safety Report 14505270 (Version 1)
Quarter: 2018Q1

REPORT INFORMATION
  Report Type: Spontaneous
  Country: US (occurrence: US)
  Receive Date: 20180208
  Receipt Date: 20180208
  Transmission Date: 20180509
  Serious: Yes (Life-Threatening, Hospitalization, Other)
  Sender: FDA-Public Use
  Company Number: US-WEST-WARD PHARMACEUTICALS CORP.-US-H14001-18-00804

PATIENT
  Age: 38 Year
  Sex: Female

DRUGS (9)
  1. DEXAMETHASONE. [Suspect]
     Active Substance: DEXAMETHASONE
     Indication: HISTIOCYTOSIS HAEMATOPHAGIC
     Route: 065
  2. DEXAMETHASONE. [Suspect]
     Active Substance: DEXAMETHASONE
     Route: 065
  3. ETOPOSIDE. [Suspect]
     Active Substance: ETOPOSIDE
     Indication: HISTIOCYTOSIS HAEMATOPHAGIC
     Dosage: INCREASING THE THIRD AND FOURTH DOSES OF ETOPOSIDE TO 75 MG/M2
     Route: 065
  4. DEXAMETHASONE. [Suspect]
     Active Substance: DEXAMETHASONE
     Route: 065
  5. ETOPOSIDE. [Suspect]
     Active Substance: ETOPOSIDE
     Indication: HISTIOCYTOSIS HAEMATOPHAGIC
     Route: 065
  6. ETOPOSIDE. [Suspect]
     Active Substance: ETOPOSIDE
     Indication: HISTIOCYTOSIS HAEMATOPHAGIC
     Dosage: ETOPOSIDE THERAPY TWICE WEEKLY, WHICH WAS DOSE-REDUCED TO 37.5 MG/M2
     Route: 065
  7. IMMUNGLOBULIN (IMMUNOGLOBULIN HUMAN NORMAL) [Suspect]
     Active Substance: HUMAN IMMUNOGLOBULIN G
     Indication: HISTIOCYTOSIS HAEMATOPHAGIC
     Dosage: 1 G/KG
     Route: 042
  8. DEXAMETHASONE. [Suspect]
     Active Substance: DEXAMETHASONE
     Route: 065
  9. RITUXIMAB. [Suspect]
     Active Substance: RITUXIMAB
     Indication: HISTIOCYTOSIS HAEMATOPHAGIC
     Dosage: ADMINISTERED ON HOSPITAL DAY 11, DAY 21
     Route: 065

REACTIONS (12)
  - Pancytopenia [None]
  - Renal failure [None]
  - Systemic candida [Unknown]
  - Drug ineffective [None]
  - Thrombocytopenia [Not Recovered/Not Resolved]
  - Cerebral haemorrhage [None]
  - Multiple organ dysfunction syndrome [None]
  - Neutropenia [Not Recovered/Not Resolved]
  - Serum ferritin increased [None]
  - Candida infection [Unknown]
  - Liver function test increased [None]
  - Subdural haematoma [Not Recovered/Not Resolved]
